FAERS Safety Report 23310103 (Version 2)
Quarter: 2023Q4

REPORT INFORMATION
  Report Type: Spontaneous
  Country: IT (occurrence: IT)
  Receive Date: 20231218
  Receipt Date: 20231227
  Transmission Date: 20240110
  Serious: Yes (Death, Hospitalization)
  Sender: FDA-Public Use
  Company Number: None

PATIENT
  Age: 85 Year
  Sex: Female
  Weight: 74 kg

DRUGS (1)
  1. EDOXABAN TOSYLATE [Suspect]
     Active Substance: EDOXABAN TOSYLATE
     Indication: Atrial fibrillation
     Dosage: 30 MG, QD
     Route: 048

REACTIONS (4)
  - Cardiac failure [Fatal]
  - Pneumonia [Fatal]
  - Infection [Fatal]
  - Abdominal wall haematoma [Recovered/Resolved with Sequelae]

NARRATIVE: CASE EVENT DATE: 20231020
